FAERS Safety Report 17441242 (Version 1)
Quarter: 2020Q1

REPORT INFORMATION
  Report Type: Spontaneous
  Country: US (occurrence: US)
  Receive Date: 20200220
  Receipt Date: 20200220
  Transmission Date: 20200409
  Serious: No
  Sender: FDA-Public Use
  Company Number: US-SA-2020SA042093

PATIENT

DRUGS (1)
  1. DUPIXENT [Suspect]
     Active Substance: DUPILUMAB
     Indication: ASTHMA

REACTIONS (6)
  - Paraesthesia [Unknown]
  - Vision blurred [Unknown]
  - Diarrhoea [Unknown]
  - Nausea [Unknown]
  - Condition aggravated [Unknown]
  - Dyspnoea [Unknown]
